FAERS Safety Report 9893723 (Version 2)
Quarter: 2014Q1

REPORT INFORMATION
  Report Type: Report from Study
  Country: AU (occurrence: AU)
  Receive Date: 20140213
  Receipt Date: 20140213
  Transmission Date: 20141002
  Serious: Yes (Death, Other)
  Sender: FDA-Public Use
  Company Number: PHHY2010AU095165

PATIENT
  Age: 94 Year
  Sex: Female

DRUGS (3)
  1. FEMARA [Suspect]
     Indication: BREAST CANCER RECURRENT
     Dosage: 2.5 MG, DAILY
     Route: 048
     Dates: start: 200907
  2. COVERSYL PLUS                      /01421201/ [Concomitant]
     Dosage: UNK UKN, UNK
  3. FERROTABS [Concomitant]
     Dosage: UNK UKN, UNK
     Dates: start: 20140211

REACTIONS (2)
  - Death [Fatal]
  - Osteoporosis [Unknown]
